FAERS Safety Report 16476823 (Version 1)
Quarter: 2019Q2

REPORT INFORMATION
  Report Type: Report from Study
  Country: None (occurrence: US)
  Receive Date: 20190626
  Receipt Date: 20190626
  Transmission Date: 20190711
  Serious: Yes (Hospitalization, Other)
  Sender: FDA-Public Use
  Company Number: US-ABBVIE-19K-163-2799987-00

PATIENT
  Age: 50 Year
  Sex: Female
  Weight: 95.34 kg

DRUGS (1)
  1. HUMIRA [Suspect]
     Active Substance: ADALIMUMAB
     Indication: RHEUMATOID ARTHRITIS
     Route: 058
     Dates: start: 2018

REACTIONS (2)
  - Surgery [Recovering/Resolving]
  - Cartilage atrophy [Recovering/Resolving]

NARRATIVE: CASE EVENT DATE: 20190122
